FAERS Safety Report 16766393 (Version 1)
Quarter: 2019Q3

REPORT INFORMATION
  Report Type: Spontaneous
  Country: PT (occurrence: PT)
  Receive Date: 20190903
  Receipt Date: 20190903
  Transmission Date: 20191005
  Serious: Yes (Hospitalization, Disabling, Other)
  Sender: FDA-Public Use
  Company Number: PT-MYLANLABS-2019M1081104

PATIENT
  Age: 79 Year
  Sex: Male
  Weight: 75 kg

DRUGS (6)
  1. LINEZOLID. [Suspect]
     Active Substance: LINEZOLID
     Indication: RESPIRATORY TRACT INFECTION
     Dosage: UNK
  2. ENOXAPARIN [Concomitant]
     Active Substance: ENOXAPARIN
     Dosage: 40 MILLIGRAM, QD
  3. AMOXICILLIN/CLAVULANIC ACID [Suspect]
     Active Substance: AMOXICILLIN\CLAVULANIC ACID
     Indication: RESPIRATORY TRACT INFECTION
     Dosage: UNK
  4. PIPERACILLIN/TAZOBACTAM [Suspect]
     Active Substance: PIPERACILLIN SODIUM\TAZOBACTAM SODIUM
     Indication: RESPIRATORY TRACT INFECTION
     Dosage: UNK
  5. MEROPENEM. [Suspect]
     Active Substance: MEROPENEM
     Indication: RESPIRATORY TRACT INFECTION
     Dosage: UNK
  6. TISSUE PLASMINOGEN ACTIVATOR, RECOMBINATIVE [Concomitant]
     Active Substance: ALTEPLASE
     Indication: FIBRINOLYSIS
     Dosage: RT-PA 0.9 MG/KG FOR AN ESTIMATED WEIGHT OF 75 KG

REACTIONS (1)
  - Renal injury [Not Recovered/Not Resolved]
